FAERS Safety Report 6793191-9 (Version None)
Quarter: 2010Q2

REPORT INFORMATION
  Report Type: 
  Country: None (occurrence: None)
  Receive Date: 20100624
  Receipt Date: 20090722
  Transmission Date: 20101027
  Serious: Yes (Death)
  Sender: FDA-Public Use
  Company Number: US-MYLANLABS-2009S1012951

PATIENT
  Age: 54 Year
  Sex: Female

DRUGS (5)
  1. CLOZAPINE [Suspect]
     Route: 048
     Dates: end: 20090101
  2. LEXAPRO [Concomitant]
  3. RISPERIDONE [Concomitant]
  4. ALENDRONATE SODIUM [Concomitant]
  5. LIPITOR [Concomitant]

REACTIONS (1)
  - DEATH [None]
